FAERS Safety Report 7484229-4 (Version None)
Quarter: 2011Q2

REPORT INFORMATION
  Report Type: 
  Country: None (occurrence: None)
  Receive Date: 20110513
  Receipt Date: 20110513
  Transmission Date: 20111010
  Serious: No
  Sender: FDA-Public Use
  Company Number: None

PATIENT
  Age: 60 Year
  Sex: Male
  Weight: 149.687 kg

DRUGS (1)
  1. LEVAQUIN [Suspect]
     Indication: SINUSITIS
     Dosage: 500 MG DAILY PO  3 PILLS OVER THREE DAYS
     Route: 048
     Dates: start: 20110308, end: 20110310

REACTIONS (2)
  - TENDON RUPTURE [None]
  - TENDONITIS [None]
